FAERS Safety Report 22589593 (Version 1)
Quarter: 2023Q2

REPORT INFORMATION
  Report Type: Spontaneous
  Country: CA (occurrence: CA)
  Receive Date: 20230612
  Receipt Date: 20230612
  Transmission Date: 20230722
  Serious: Yes (Hospitalization, Other)
  Sender: FDA-Public Use
  Company Number: CA-MYLANLABS-2023M1060988

PATIENT
  Age: 75 Year
  Sex: Female
  Weight: 70 kg

DRUGS (18)
  1. GABAPENTIN [Suspect]
     Active Substance: GABAPENTIN
     Indication: Product used for unknown indication
     Dosage: UNK
     Route: 065
  2. AZARGA [Suspect]
     Active Substance: BRINZOLAMIDE\TIMOLOL MALEATE
     Indication: Glaucoma
     Dosage: UNK
     Route: 065
  3. NAPROXEN [Suspect]
     Active Substance: NAPROXEN
     Indication: Arthralgia
     Dosage: UNK
     Route: 065
  4. PREGABALIN [Suspect]
     Active Substance: PREGABALIN
     Indication: Arthralgia
     Dosage: UNK
     Route: 065
  5. ACETAMINOPHEN [Concomitant]
     Active Substance: ACETAMINOPHEN
     Dosage: UNK
     Route: 065
  6. AMOXICILLIN [Concomitant]
     Active Substance: AMOXICILLIN
     Dosage: UNK
     Route: 065
  7. ATORVASTATIN CALCIUM [Concomitant]
     Active Substance: ATORVASTATIN CALCIUM
     Dosage: UNK
     Route: 065
  8. CALCIUM CARBONATE [Concomitant]
     Active Substance: CALCIUM CARBONATE
     Dosage: UNK
     Route: 065
  9. CLONAZEPAM [Concomitant]
     Active Substance: CLONAZEPAM
     Dosage: UNK
     Route: 065
  10. DICLOFENAC [Concomitant]
     Active Substance: DICLOFENAC
     Dosage: UNK
     Route: 065
  11. ESTRADIOL [Concomitant]
     Active Substance: ESTRADIOL
     Indication: Menopausal symptoms
     Dosage: UNK
     Route: 065
  12. IBUPROFEN [Concomitant]
     Active Substance: IBUPROFEN
     Dosage: UNK
     Route: 065
  13. IPRATROPIUM [Concomitant]
     Active Substance: IPRATROPIUM
     Indication: Rhinitis
     Dosage: UNK
     Route: 045
  14. LATANOPROST [Concomitant]
     Active Substance: LATANOPROST
     Dosage: UNK
     Route: 047
  15. TELMISARTAN [Concomitant]
     Active Substance: TELMISARTAN
     Dosage: UNK
     Route: 065
  16. VITAMIN B6 [Concomitant]
     Active Substance: PYRIDOXINE HYDROCHLORIDE
     Dosage: UNK
     Route: 065
  17. VITAMIN D3 [Concomitant]
     Active Substance: CHOLECALCIFEROL
     Dosage: UNK
     Route: 065
  18. ZOPICLONE [Concomitant]
     Active Substance: ZOPICLONE
     Indication: Insomnia
     Dosage: UNK
     Route: 065

REACTIONS (4)
  - Nikolsky^s sign [Recovered/Resolved]
  - Rash erythematous [Recovered/Resolved]
  - Rash papular [Recovered/Resolved]
  - Toxic epidermal necrolysis [Recovered/Resolved]
